FAERS Safety Report 5953346-X (Version None)
Quarter: 2008Q4

REPORT INFORMATION
  Report Type: 
  Country: None (occurrence: None)
  Receive Date: 20081114
  Receipt Date: 20081104
  Transmission Date: 20090506
  Serious: Yes (Other)
  Sender: FDA-Public Use
  Company Number: US-ABBOTT-08P-163-0485434-00

PATIENT
  Sex: Male

DRUGS (5)
  1. HUMIRA [Suspect]
     Indication: CROHN'S DISEASE
     Route: 058
     Dates: start: 20080101, end: 20081003
  2. HUMIRA [Suspect]
     Route: 058
     Dates: start: 20081003
  3. BUDESONIDE [Concomitant]
     Indication: DRUG USE FOR UNKNOWN INDICATION
  4. MESALAMINE [Concomitant]
     Indication: DRUG USE FOR UNKNOWN INDICATION
  5. PHENERGAN HCL [Concomitant]
     Indication: NAUSEA
     Dosage: PRN

REACTIONS (2)
  - DRUG INEFFECTIVE [None]
  - INTESTINAL OBSTRUCTION [None]
